FAERS Safety Report 8695192 (Version 2)
Quarter: 2012Q4

REPORT INFORMATION
  Report Type: 
  Country: US (occurrence: US)
  Receive Date: 20120731
  Receipt Date: 20121004
  Transmission Date: 20130627
  Serious: Yes (Hospitalization, Disabling, Other)
  Sender: FDA-Public Use
  Company Number: US-CELGENEUS-163-21880-12052408

PATIENT
  Age: 88 Year
  Sex: Female

DRUGS (5)
  1. REVLIMID [Suspect]
     Indication: MYELODYSPLASTIC SYNDROME
     Dosage: 10 Milligram
     Route: 048
     Dates: start: 20120306
  2. REVLIMID [Suspect]
     Dosage: 5 Milligram
     Route: 048
     Dates: start: 20120423, end: 20120524
  3. REVLIMID [Suspect]
     Dosage: 5 Milligram
     Route: 048
     Dates: start: 20120626, end: 20120629
  4. ANTIBIOTICS [Concomitant]
     Indication: UTI
     Route: 065
  5. FLUID [Concomitant]
     Indication: DRUG USE FOR UNKNOWN INDICATION
     Dosage: 75cc
     Route: 041

REACTIONS (3)
  - Stevens-Johnson syndrome [Recovered/Resolved]
  - Rash generalised [Recovered/Resolved]
  - Urinary tract infection [Unknown]
